FAERS Safety Report 17288661 (Version 4)
Quarter: 2020Q3

REPORT INFORMATION
  Report Type: Report from Study
  Country: MX (occurrence: MX)
  Receive Date: 20200120
  Receipt Date: 20200926
  Transmission Date: 20201102
  Serious: Yes (Death, Hospitalization)
  Sender: FDA-Public Use
  Company Number: NVSC2020MX012123

PATIENT
  Age: 65 Year
  Sex: Female
  Weight: 48 kg

DRUGS (3)
  1. ENTRESTO [Suspect]
     Active Substance: SACUBITRIL\VALSARTAN
     Indication: CARDIAC DISORDER
     Dosage: 0.5 DF, BID (50 MG) (1 YEAR AGO)
     Route: 065
     Dates: end: 20200107
  2. ENTRESTO [Suspect]
     Active Substance: SACUBITRIL\VALSARTAN
     Indication: ATRIOVENTRICULAR BLOCK
     Dosage: 0.5 DF (50MG), EVERY 12 HOURS EVERY THIRD DAY
     Route: 048
  3. ENTRESTO [Suspect]
     Active Substance: SACUBITRIL\VALSARTAN
     Dosage: 0.5 DF (50MG), BID (AROUND 2 YEARS AGO)
     Route: 065

REACTIONS (6)
  - Prescribed underdose [Unknown]
  - Infarction [Fatal]
  - Coronary artery occlusion [Unknown]
  - Wrong technique in product usage process [Unknown]
  - Product use in unapproved indication [Unknown]
  - Product prescribing error [Unknown]

NARRATIVE: CASE EVENT DATE: 2017
